FAERS Safety Report 23812620 (Version 3)
Quarter: 2024Q3

REPORT INFORMATION
  Report Type: Spontaneous
  Country: US (occurrence: US)
  Receive Date: 20240503
  Receipt Date: 20240712
  Transmission Date: 20241017
  Serious: Yes (Hospitalization)
  Sender: ROCHE
  Company Number: US-ROCHE-3555480

PATIENT
  Age: 87 Year
  Sex: Male

DRUGS (1)
  1. ERIVEDGE [Suspect]
     Active Substance: VISMODEGIB
     Indication: Basal cell carcinoma
     Route: 048

REACTIONS (3)
  - Myocardial infarction [Unknown]
  - Muscle spasms [Unknown]
  - Ageusia [Unknown]

NARRATIVE: CASE EVENT DATE: 20230201
